FAERS Safety Report 7465589-7 (Version None)
Quarter: 2011Q2

REPORT INFORMATION
  Report Type: 
  Country: None (occurrence: None)
  Receive Date: 20110509
  Receipt Date: 20110429
  Transmission Date: 20111010
  Serious: Yes (Hospitalization, Other)
  Sender: FDA-Public Use
  Company Number: AU-ASTRAZENECA-2011SE25133

PATIENT
  Age: 0 Day
  Sex: Male
  Weight: 2.7 kg

DRUGS (3)
  1. LEXAPRO [Concomitant]
     Indication: ANTIDEPRESSANT THERAPY
     Dosage: 10-20 MG DAILY
     Route: 064
  2. QUETIAPINE [Suspect]
     Indication: PSYCHOTIC DISORDER
     Route: 064
  3. ELEVIT [Concomitant]
     Indication: PREGNANCY
     Route: 064

REACTIONS (1)
  - RESPIRATORY DISTRESS [None]
